FAERS Safety Report 4660240-3 (Version None)
Quarter: 2005Q2

REPORT INFORMATION
  Report Type: 
  Country: None (occurrence: None)
  Receive Date: 20050421
  Receipt Date: 20050311
  Transmission Date: 20051028
  Serious: Yes (Hospitalization)
  Sender: FDA-Public Use
  Company Number: 2005-124585-NL

PATIENT
  Age: 28 Year
  Sex: Female
  Weight: 56.7 kg

DRUGS (5)
  1. PUREGON [Suspect]
     Indication: OVULATION INDUCTION
     Dates: start: 20041218, end: 20041222
  2. PUREGON [Suspect]
     Indication: OVULATION INDUCTION
     Dates: start: 20041223, end: 20041226
  3. CHORIONIC GONADOTROPIN [Suspect]
     Dosage: DF DAILY
     Dates: start: 20041227
  4. REPRONEX [Suspect]
     Indication: OVULATION INDUCTION
     Dosage: 75 IU QD INTRAMUSCULAR
     Route: 030
     Dates: start: 20041215
  5. REPRONEX [Suspect]
     Indication: OVULATION INDUCTION
     Dosage: 150 IU QD INTRAMUSCULAR
     Route: 030
     Dates: start: 20041216, end: 20041217

REACTIONS (2)
  - OVARIAN HYPERSTIMULATION SYNDROME [None]
  - PULMONARY EMBOLISM [None]
